FAERS Safety Report 9419356 (Version 1)
Quarter: 2013Q3

REPORT INFORMATION
  Report Type: Spontaneous
  Country: US (occurrence: US)
  Receive Date: 20130725
  Receipt Date: 20130725
  Transmission Date: 20140515
  Serious: Yes (Life-Threatening, Hospitalization, Other)
  Sender: FDA-Public Use
  Company Number: US-GLAXOSMITHKLINE-A1020658A

PATIENT
  Age: 29 Year
  Sex: Male
  Weight: 70.5 kg

DRUGS (2)
  1. LAMICTAL [Suspect]
     Indication: EPILEPSY
     Route: 048
     Dates: start: 20130308, end: 20130408
  2. NO CONCURRENT MEDICATION [Concomitant]

REACTIONS (9)
  - Stevens-Johnson syndrome [Recovering/Resolving]
  - Rash [Unknown]
  - Conjunctival hyperaemia [Unknown]
  - Mucosal erosion [Unknown]
  - Blister [Unknown]
  - Tachycardia [Unknown]
  - Skin exfoliation [Unknown]
  - Scab [Unknown]
  - Cheilitis [Unknown]
